FAERS Safety Report 9376519 (Version 1)
Quarter: 2013Q3

REPORT INFORMATION
  Report Type: Spontaneous
  Country: US (occurrence: US)
  Receive Date: 20130701
  Receipt Date: 20130701
  Transmission Date: 20140515
  Serious: No
  Sender: FDA-Public Use
  Company Number: US-PFIZER INC-2013192077

PATIENT
  Age: 67 Year
  Sex: Female

DRUGS (1)
  1. VFEND [Suspect]
     Indication: LUNG TRANSPLANT
     Dosage: 200 MG, 2X/DAY
     Dates: start: 20130607, end: 201306

REACTIONS (2)
  - Nausea [Unknown]
  - Weight decreased [Unknown]
